FAERS Safety Report 4536422-8 (Version None)
Quarter: 2004Q4

REPORT INFORMATION
  Report Type: 
  Country: None (occurrence: None)
  Receive Date: 20041223
  Receipt Date: 20041005
  Transmission Date: 20050328
  Serious: No
  Sender: FDA-Public Use
  Company Number: US-GLAXOSMITHKLINE-A0528555A

PATIENT
  Age: 71 Year
  Sex: Female

DRUGS (4)
  1. FLONASE [Suspect]
     Dosage: 2SPR TWICE PER DAY
     Route: 045
     Dates: start: 20040923, end: 20040928
  2. PRINZIDE [Concomitant]
     Route: 065
  3. MENEST [Concomitant]
  4. LEVOTHROID [Concomitant]

REACTIONS (3)
  - COUGH [None]
  - INSOMNIA [None]
  - PHARYNGOLARYNGEAL PAIN [None]
